FAERS Safety Report 5125784-9 (Version None)
Quarter: 2006Q4

REPORT INFORMATION
  Report Type: 
  Country: None (occurrence: None)
  Receive Date: 20061010
  Receipt Date: 20061010
  Transmission Date: 20070319
  Serious: Yes (Other)
  Sender: FDA-Public Use
  Company Number: None

PATIENT
  Sex: Male
  Weight: 106.8 kg

DRUGS (2)
  1. ARALAST [Suspect]
     Indication: ALPHA-1 ANTI-TRYPSIN DEFICIENCY
     Dosage: 8500 MG Q WEEK IV
     Route: 042
  2. ARALAST [Suspect]
     Indication: EMPHYSEMA
     Dosage: 8500 MG Q WEEK IV
     Route: 042

REACTIONS (2)
  - EYE SWELLING [None]
  - VISION BLURRED [None]
